FAERS Safety Report 17433720 (Version 1)
Quarter: 2020Q1

REPORT INFORMATION
  Report Type: Spontaneous
  Country: KR (occurrence: KR)
  Receive Date: 20200219
  Receipt Date: 20200219
  Transmission Date: 20200409
  Serious: Yes (Other)
  Sender: FDA-Public Use
  Company Number: KR-MACLEODS PHARMACEUTICALS US LTD-MAC2020025219

PATIENT

DRUGS (3)
  1. ARIPIPRAZOLE. [Suspect]
     Active Substance: ARIPIPRAZOLE
     Indication: INTELLECTUAL DISABILITY
     Dosage: 10 MILLIGRAM, QD
     Route: 065
  2. ARIPIPRAZOLE. [Suspect]
     Active Substance: ARIPIPRAZOLE
     Dosage: 5 MILLIGRAM, QD
     Route: 065
  3. PROCYCLIDINE [Suspect]
     Active Substance: PROCYCLIDINE
     Indication: EXTRAPYRAMIDAL DISORDER
     Dosage: 5 MILLIGRAM, QD
     Route: 065

REACTIONS (4)
  - Oculogyric crisis [Recovered/Resolved]
  - Extrapyramidal disorder [Recovered/Resolved]
  - Dystonia [Recovered/Resolved]
  - Dysuria [Recovered/Resolved]
